FAERS Safety Report 22102038 (Version 1)
Quarter: 2023Q1

REPORT INFORMATION
  Report Type: Spontaneous
  Country: US (occurrence: US)
  Receive Date: 20230316
  Receipt Date: 20230316
  Transmission Date: 20230418
  Serious: No
  Sender: FDA-Public Use
  Company Number: US-GLENMARK PHARMACEUTICALS-2022GMK075074

PATIENT

DRUGS (3)
  1. IMIQUIMOD [Suspect]
     Active Substance: IMIQUIMOD
     Indication: Neoplasm malignant
     Dosage: UNK, (TWICE A WEEK)
     Route: 061
  2. IMIQUIMOD [Suspect]
     Active Substance: IMIQUIMOD
     Indication: Prophylaxis
  3. TYLENOL [Concomitant]
     Active Substance: ACETAMINOPHEN
     Indication: Product used for unknown indication
     Dosage: UNK
     Route: 065

REACTIONS (3)
  - Product use in unapproved indication [Unknown]
  - Product packaging quantity issue [Unknown]
  - Product quality issue [Unknown]
